FAERS Safety Report 5473881-0 (Version None)
Quarter: 2007Q3

REPORT INFORMATION
  Report Type: 
  Country: None (occurrence: None)
  Receive Date: 20070831
  Receipt Date: 20070621
  Transmission Date: 20080115
  Serious: No
  Sender: FDA-Public Use
  Company Number: 243370

PATIENT
  Age: 83 Year
  Sex: Female

DRUGS (5)
  1. LUCENTIS [Suspect]
     Indication: MACULAR DEGENERATION
     Dates: start: 20070227
  2. LISINOPRIL [Concomitant]
  3. TRIMETHOPRIM [Concomitant]
  4. ALEVE [Concomitant]
  5. LORAZEPAM [Concomitant]

REACTIONS (2)
  - EYE PAIN [None]
  - OCULAR HYPERAEMIA [None]
